FAERS Safety Report 5756752-1 (Version None)
Quarter: 2008Q2

REPORT INFORMATION
  Report Type: 
  Country: None (occurrence: None)
  Receive Date: 20080603
  Receipt Date: 20080527
  Transmission Date: 20081010
  Serious: Yes (Death)
  Sender: FDA-Public Use
  Company Number: US-BAXTER-2008BH005488

PATIENT
  Age: 79 Year
  Sex: Female

DRUGS (1)
  1. HEPARIN SODIUM 5,000 UNITS IN DEXTROSE 5% [Suspect]
     Indication: VASCULAR GRAFT
     Dosage: DOSE UNIT:UNKNOWN
     Route: 042
     Dates: start: 20061014

REACTIONS (3)
  - CEREBROVASCULAR ACCIDENT [None]
  - FURUNCLE [None]
  - RASH PRURITIC [None]
